FAERS Safety Report 4286578-X (Version None)
Quarter: 2004Q1

REPORT INFORMATION
  Report Type: 
  Country: None (occurrence: None)
  Receive Date: 20040205
  Receipt Date: 20040122
  Transmission Date: 20041129
  Serious: Yes (Death)
  Sender: FDA-Public Use
  Company Number: 2004S1000205

PATIENT
  Age: 42 Year
  Sex: Male

DRUGS (2)
  1. CLOZAPINE [Suspect]
     Indication: SCHIZOPHRENIA
     Dosage: 200 MG QAM AND 400MG QHS, ORAL
     Route: 048
     Dates: start: 20020201, end: 20040102
  2. RISPERIDONE [Concomitant]

REACTIONS (1)
  - MYOCARDIAL INFARCTION [None]
